FAERS Safety Report 11255455 (Version 1)
Quarter: 2015Q3

REPORT INFORMATION
  Report Type: Spontaneous
  Country: US (occurrence: US)
  Receive Date: 20150709
  Receipt Date: 20150709
  Transmission Date: 20151125
  Serious: No
  Sender: FDA-Public Use
  Company Number: US-SA-2015SA083778

PATIENT
  Age: 60 Year
  Sex: Male

DRUGS (3)
  1. AFREZZA [Suspect]
     Active Substance: INSULIN HUMAN
     Dosage: DOSE:12 UNIT(S)
     Route: 065
  2. APIDRA [Concomitant]
     Active Substance: INSULIN GLULISINE
  3. APIDRA [Concomitant]
     Active Substance: INSULIN GLULISINE

REACTIONS (2)
  - Nausea [Unknown]
  - Blood glucose increased [Unknown]
